FAERS Safety Report 6863246-9 (Version None)
Quarter: 2010Q3

REPORT INFORMATION
  Report Type: 
  Country: None (occurrence: None)
  Receive Date: 20100721
  Receipt Date: 20100716
  Transmission Date: 20110219
  Serious: Yes (Other)
  Sender: FDA-Public Use
  Company Number: PHHY2009CA17874

PATIENT
  Sex: Male

DRUGS (2)
  1. SANDOSTATIN LAR [Suspect]
     Indication: PANCREATITIS CHRONIC
     Dosage: 30 MG, QMO
     Route: 030
     Dates: start: 20080404
  2. SANDOSTATIN LAR [Suspect]
     Dosage: 30 MG, EVERY 4 WEEKS
     Route: 030

REACTIONS (2)
  - BLOOD PRESSURE INCREASED [None]
  - HEART RATE INCREASED [None]
